FAERS Safety Report 14994122 (Version 1)
Quarter: 2018Q2

REPORT INFORMATION
  Report Type: Spontaneous
  Country: US (occurrence: US)
  Receive Date: 20180611
  Receipt Date: 20180611
  Transmission Date: 20180711
  Serious: No
  Sender: FDA-Public Use
  Company Number: US-APOTEX-2018AP010584

PATIENT

DRUGS (1)
  1. AZELASTINE HYDROCHLORIDE. [Suspect]
     Active Substance: AZELASTINE HYDROCHLORIDE
     Indication: SNEEZING
     Dosage: 1 SPRAY IN EACH NOSTRIL, BID
     Route: 045
     Dates: start: 201801, end: 20180105

REACTIONS (6)
  - Epistaxis [Recovering/Resolving]
  - Hyposmia [Not Recovered/Not Resolved]
  - Rhinalgia [Recovering/Resolving]
  - Rhinorrhoea [Not Recovered/Not Resolved]
  - Nasal discomfort [Not Recovered/Not Resolved]
  - Sneezing [Not Recovered/Not Resolved]
